FAERS Safety Report 25008110 (Version 3)
Quarter: 2025Q3

REPORT INFORMATION
  Report Type: Spontaneous
  Country: JP (occurrence: JP)
  Receive Date: 20250225
  Receipt Date: 20250802
  Transmission Date: 20251021
  Serious: Yes (Death, Hospitalization, Disabling, Other)
  Sender: ALEXION PHARMACEUTICALS
  Company Number: JP-ASTRAZENECA-240108680_064320_P_1

PATIENT
  Age: 87 Year
  Sex: Female
  Weight: 65 kg

DRUGS (22)
  1. ANDEXXA [Suspect]
     Active Substance: ANDEXANET ALFA
  2. ANDEXXA [Suspect]
     Active Substance: ANDEXANET ALFA
     Dates: start: 20241004, end: 20241004
  3. ELIQUIS [Concomitant]
     Active Substance: APIXABAN
     Route: 065
  4. APIXABAN [Suspect]
     Active Substance: APIXABAN
     Dosage: DOSE UNKNOWN
     Dates: end: 20241003
  5. JANUVIA [Suspect]
     Active Substance: SITAGLIPTIN PHOSPHATE
     Dates: end: 20241003
  6. FUROSEMIDE [Suspect]
     Active Substance: FUROSEMIDE
     Dates: end: 20241003
  7. CARVEDILOL [Suspect]
     Active Substance: CARVEDILOL
     Dates: end: 20241003
  8. NEXIUM [Suspect]
     Active Substance: ESOMEPRAZOLE MAGNESIUM
     Dates: end: 20241003
  9. AMIODARONE HYDROCHLORIDE [Concomitant]
     Active Substance: AMIODARONE HYDROCHLORIDE
     Indication: Atrial fibrillation
     Dates: end: 20241003
  10. ALDACTONE [Suspect]
     Active Substance: SPIRONOLACTONE
     Dates: end: 20241003
  11. AMIODARONE [Suspect]
     Active Substance: AMIODARONE
     Dates: end: 20241003
  12. NOREPINEPHRINE BITARTRATE [Concomitant]
     Active Substance: NOREPINEPHRINE BITARTRATE
     Route: 065
  13. PITRESSIN [Concomitant]
     Active Substance: VASOPRESSIN
     Route: 065
  14. LASIX [Concomitant]
     Active Substance: FUROSEMIDE
     Route: 065
  15. MEYLON [Concomitant]
     Active Substance: SODIUM BICARBONATE
     Route: 065
  16. MENATETRENONE [Concomitant]
     Active Substance: MENATETRENONE
     Route: 065
  17. ATROPINE SULFATE [Concomitant]
     Active Substance: ATROPINE SULFATE
     Route: 065
  18. ALBUMINAR [Concomitant]
     Active Substance: ALBUMIN HUMAN
     Route: 065
  19. HUMULIN N [Concomitant]
     Active Substance: INSULIN HUMAN
     Route: 065
  20. CALCIUM GLUCONATE [Concomitant]
     Active Substance: CALCIUM GLUCONATE
     Route: 065
  21. HYDROCORTISONE SODIUM SUCCINATE [Concomitant]
     Active Substance: HYDROCORTISONE SODIUM SUCCINATE
     Route: 065
  22. PIPERACILLIN SODIUM\TAZOBACTAM SODIUM [Concomitant]
     Active Substance: PIPERACILLIN SODIUM\TAZOBACTAM SODIUM
     Route: 065

REACTIONS (4)
  - Coagulopathy [Fatal]
  - Septic shock [Fatal]
  - Cholecystitis acute [Fatal]
  - Renal impairment [Unknown]

NARRATIVE: CASE EVENT DATE: 20241003
